FAERS Safety Report 8185704-X (Version None)
Quarter: 2012Q1

REPORT INFORMATION
  Report Type: 
  Country: None (occurrence: None)
  Receive Date: 20120305
  Receipt Date: 20120221
  Transmission Date: 20120608
  Serious: Yes (Hospitalization)
  Sender: FDA-Public Use
  Company Number: DE-FRI-1000028719

PATIENT
  Sex: Female

DRUGS (6)
  1. LEVOTHYROXINE SODIUM [Concomitant]
     Dosage: 88 MICROGRAMS
     Route: 048
  2. CITALOPRAM HYDROBROMIDE [Suspect]
     Dosage: 20 MG
     Route: 048
     Dates: end: 20110921
  3. CITALOPRAM HYDROBROMIDE [Interacting]
     Dosage: 10 MG
     Route: 048
     Dates: start: 20110922, end: 20110923
  4. DIOVAN [Interacting]
     Dosage: 120 MG
     Route: 048
     Dates: start: 20110920
  5. HYDROCHLOROTHIAZIDE [Interacting]
     Dosage: 18.5 MG
     Route: 048
     Dates: start: 20110921, end: 20111018
  6. HYDROCHLOROTHIAZIDE [Interacting]
     Dosage: 12.5 MG
     Route: 048
     Dates: end: 20110920

REACTIONS (2)
  - POTENTIATING DRUG INTERACTION [None]
  - HYPONATRAEMIA [None]
